FAERS Safety Report 5054471-0 (Version None)
Quarter: 2006Q3

REPORT INFORMATION
  Report Type: 
  Country: None (occurrence: None)
  Receive Date: 20060713
  Receipt Date: 20060629
  Transmission Date: 20061208
  Serious: Yes (Hospitalization)
  Sender: FDA-Public Use
  Company Number: 2006-01134

PATIENT
  Age: 68 Year
  Sex: Female
  Weight: 57.2 kg

DRUGS (16)
  1. VELCADE [Suspect]
     Indication: OVARIAN CANCER
     Dosage: 1.30 MG/M2, INTRAVENOUS; 1.00 MG/M2 INTRAVENOUS
     Route: 042
     Dates: start: 20060222, end: 20060426
  2. VELCADE [Suspect]
     Indication: OVARIAN CANCER
     Dosage: 1.30 MG/M2, INTRAVENOUS; 1.00 MG/M2 INTRAVENOUS
     Route: 042
     Dates: start: 20060517, end: 20060527
  3. CARBOPLATIN [Suspect]
     Indication: OVARIAN CANCER
     Dosage: 270.00 MG, INTRAVENOUS; 325.00 MG, INTRAVENOUS
     Route: 042
     Dates: start: 20060222, end: 20060419
  4. CARBOPLATIN [Suspect]
     Indication: OVARIAN CANCER
     Dosage: 270.00 MG, INTRAVENOUS; 325.00 MG, INTRAVENOUS
     Route: 042
     Dates: start: 20060517, end: 20060517
  5. PROTONIX [Concomitant]
  6. LOVENOX [Concomitant]
  7. TOPROL-XL [Concomitant]
  8. LASIX [Concomitant]
  9. SPIRONOLACTONE [Concomitant]
  10. MULTIPLE VITAMINS (ERGOCALCIFEROL, VITAMIN B NOS, TOCOPHEROL, ASCORBIC [Concomitant]
  11. VITAMIN B6 [Concomitant]
  12. MAGNESIUM (MAGNESIUM) [Concomitant]
  13. SENOKOT [Concomitant]
  14. LORTAB [Concomitant]
  15. ZOFRAN [Concomitant]
  16. LISINOPRIL [Concomitant]

REACTIONS (13)
  - ASTHENIA [None]
  - DIARRHOEA [None]
  - DIZZINESS [None]
  - FAILURE TO THRIVE [None]
  - FATIGUE [None]
  - FEELING ABNORMAL [None]
  - HAEMATOCRIT DECREASED [None]
  - HAEMOGLOBIN DECREASED [None]
  - HYPOMAGNESAEMIA [None]
  - HYPONATRAEMIA [None]
  - ORTHOSTATIC HYPOTENSION [None]
  - SYNCOPE [None]
  - TRICUSPID VALVE INCOMPETENCE [None]
